FAERS Safety Report 6829988-6 (Version None)
Quarter: 2010Q3

REPORT INFORMATION
  Report Type: 
  Country: None (occurrence: None)
  Receive Date: 20100711
  Receipt Date: 20100419
  Transmission Date: 20110219
  Serious: No
  Sender: FDA-Public Use
  Company Number: US-ALLERGAN-1005128US

PATIENT
  Age: 48 Year
  Sex: Female

DRUGS (2)
  1. LATISSE [Suspect]
     Indication: PRODUCT USED FOR UNKNOWN INDICATION
     Dosage: 1 GTT, QHS
  2. OTC EYE DROPS [Concomitant]
     Indication: DRY EYE
     Dosage: UNK

REACTIONS (2)
  - HAIR GROWTH ABNORMAL [None]
  - THERAPEUTIC RESPONSE DECREASED [None]
